FAERS Safety Report 8301416-3 (Version None)
Quarter: 2012Q2

REPORT INFORMATION
  Report Type: 
  Country: None (occurrence: None)
  Receive Date: 20120420
  Receipt Date: 20120412
  Transmission Date: 20120825
  Serious: Yes (Death, Life-Threatening)
  Sender: FDA-Public Use
  Company Number: JP-ROCHE-612442

PATIENT
  Sex: Female
  Weight: 40 kg

DRUGS (9)
  1. ACTEMRA [Suspect]
     Indication: RHEUMATOID ARTHRITIS
     Route: 041
     Dates: start: 20081218, end: 20081218
  2. ASPARA-CA [Concomitant]
     Route: 048
     Dates: start: 20090115, end: 20090122
  3. ROCALTROL [Concomitant]
     Route: 048
     Dates: start: 20090115, end: 20090122
  4. PROGRAF [Concomitant]
     Indication: RHEUMATOID ARTHRITIS
     Route: 048
     Dates: start: 20091111, end: 20100202
  5. ENBREL [Concomitant]
     Indication: RHEUMATOID ARTHRITIS
     Route: 058
     Dates: start: 20090529, end: 20110830
  6. ACTEMRA [Suspect]
     Route: 041
     Dates: start: 20090115, end: 20090115
  7. MEDROL [Concomitant]
     Indication: RHEUMATOID ARTHRITIS
     Route: 048
     Dates: start: 20081115, end: 20090115
  8. RISEDRONATE SODIUM [Concomitant]
     Route: 048
     Dates: start: 20090115, end: 20090122
  9. METHOTREXATE [Concomitant]
     Indication: RHEUMATOID ARTHRITIS
     Route: 048
     Dates: start: 20090510, end: 20100811

REACTIONS (4)
  - INTERSTITIAL LUNG DISEASE [None]
  - CARDIAC TAMPONADE [None]
  - AORTIC ANEURYSM RUPTURE [None]
  - CARDIAC FAILURE [None]
